FAERS Safety Report 8076064-3 (Version None)
Quarter: 2012Q1

REPORT INFORMATION
  Report Type: 
  Country: None (occurrence: None)
  Receive Date: 20120127
  Receipt Date: 20110703
  Transmission Date: 20120608
  Serious: No
  Sender: FDA-Public Use
  Company Number: US-GLAXOSMITHKLINE-A0934866A

PATIENT
  Age: 58 Year
  Sex: Female

DRUGS (2)
  1. BUPROPION HYDROCHLORIDE [Suspect]
     Indication: MIGRAINE PROPHYLAXIS
     Dosage: 150MG UNKNOWN
  2. WELLBUTRIN XL [Suspect]
     Indication: MIGRAINE PROPHYLAXIS
     Dosage: 150MG PER DAY
     Route: 065
     Dates: start: 20080101

REACTIONS (4)
  - DRUG INEFFECTIVE [None]
  - THERAPEUTIC RESPONSE UNEXPECTED [None]
  - OFF LABEL USE [None]
  - MIGRAINE [None]
